FAERS Safety Report 8460167 (Version 5)
Quarter: 2013Q1

REPORT INFORMATION
  Report Type: Spontaneous
  Country: US (occurrence: None)
  Receive Date: 20120222
  Receipt Date: 20121206
  Transmission Date: 20140127
  Serious: Yes (Hospitalization)
  Sender: FDA-Public Use
  Company Number: 2012031131

PATIENT
  Age: 53 Year
  Sex: Female
  Weight: 83.46 kg

DRUGS (20)
  1. HIZENTRA (IMMUNOGLOBULIN HUMAN NORMAL) [Suspect]
     Indication: HYPOGLOBULINAEMIA
     Route: 058
     Dates: start: 20111230
  2. SINGULAIR [Concomitant]
  3. CYMBALTA [Concomitant]
  4. TORSEMIDE [Concomitant]
  5. IPRAT-ALBUT (COMBIVENT /01261001/) [Concomitant]
  6. VALIUM [Concomitant]
  7. LAMICTAL XR (LAMOTRIGINE) [Concomitant]
  8. LOVAZA (FISH OIL) [Concomitant]
  9. NEXIUM [Concomitant]
  10. TEMAZEPAM [Concomitant]
  11. ALBUTEROL (SALBUTAMOL) [Concomitant]
  12. BYSTOLIC (NEVIVOLOL) [Concomitant]
  13. ULTRAM [Concomitant]
  14. VITAMIN D [Concomitant]
  15. VITAMIN B 12 INJECTION (CYANOCOBALAMIN) [Concomitant]
  16. ISOSORBIDE (ISOSORBIDE) [Concomitant]
  17. DOXYCYCLINE [Concomitant]
  18. LEVAQUIN [Concomitant]
  19. ACETAMINOPHEN (PARACETAMOL) [Concomitant]
  20. ABILIFY [Concomitant]

REACTIONS (7)
  - Infusion site erythema [None]
  - Infusion site oedema [None]
  - Infusion site pain [None]
  - Dizziness [None]
  - Chills [None]
  - Hot flush [None]
  - Myocardial infarction [None]
